FAERS Safety Report 7674597-2 (Version None)
Quarter: 2011Q3

REPORT INFORMATION
  Report Type: 
  Country: None (occurrence: None)
  Receive Date: 20110810
  Receipt Date: 20110803
  Transmission Date: 20111222
  Serious: Yes (Hospitalization)
  Sender: FDA-Public Use
  Company Number: PHEH2011US00632

PATIENT
  Sex: Female

DRUGS (4)
  1. ROSUVASTATIN [Suspect]
     Dosage: 5 MG, UNK
  2. RECLAST [Suspect]
     Dosage: UNK UKN, UNK
     Route: 042
     Dates: start: 20110719
  3. VITAMIN D [Suspect]
     Dosage: UNK UKN, UNK
  4. CALCIUM CARBONATE [Suspect]
     Dosage: UNK UKN, UNK

REACTIONS (8)
  - MEMORY IMPAIRMENT [None]
  - TEMPERATURE INTOLERANCE [None]
  - DIZZINESS [None]
  - PAIN [None]
  - HEADACHE [None]
  - PYREXIA [None]
  - FATIGUE [None]
  - VERTIGO [None]
